FAERS Safety Report 9759689 (Version 1)
Quarter: 2013Q4

REPORT INFORMATION
  Report Type: Spontaneous
  Country: US (occurrence: US)
  Receive Date: 20131216
  Receipt Date: 20131216
  Transmission Date: 20140711
  Serious: Yes (Hospitalization)
  Sender: FDA-Public Use
  Company Number: US-GILEAD-2010-0028675

PATIENT
  Age: 64 Year
  Sex: Female
  Weight: 68.95 kg

DRUGS (13)
  1. LETAIRIS [Suspect]
     Indication: PULMONARY ARTERIAL HYPERTENSION
     Route: 048
     Dates: start: 20090514
  2. REMODULIN [Concomitant]
     Indication: PULMONARY ARTERIAL HYPERTENSION
     Dates: start: 20100126
  3. REVATIO [Concomitant]
     Indication: PULMONARY ARTERIAL HYPERTENSION
     Dates: start: 20090429
  4. ASPIRIN [Concomitant]
  5. LASIX [Concomitant]
  6. ATENOLOL [Concomitant]
  7. AMLODIPINE BESYLATE [Concomitant]
  8. SERTRALINE [Concomitant]
  9. XANAX [Concomitant]
  10. NEXIUM [Concomitant]
  11. POTASSIUM CHLORIDE [Concomitant]
  12. FISH OIL [Concomitant]
  13. MULTIVITAMIN [Concomitant]

REACTIONS (1)
  - Oedema [Recovered/Resolved]
